APPROVED DRUG PRODUCT: LANOPHYLLIN
Active Ingredient: THEOPHYLLINE
Strength: 80MG/15ML
Dosage Form/Route: ELIXIR;ORAL
Application: A084578 | Product #001
Applicant: LANNETT CO INC
Approved: Approved Prior to Jan 1, 1982 | RLD: No | RS: No | Type: DISCN